FAERS Safety Report 4850854-X (Version None)
Quarter: 2005Q4

REPORT INFORMATION
  Report Type: 
  Country: None (occurrence: None)
  Receive Date: 20051208
  Receipt Date: 20051128
  Transmission Date: 20060501
  Serious: Yes (Death)
  Sender: FDA-Public Use
  Company Number: 219798

PATIENT
  Age: 48 Year
  Sex: Male

DRUGS (1)
  1. RAPTIVA [Suspect]
     Indication: PSORIASIS
     Dosage: 0.13 UNK, 1/WEEK, SUBCUTANEOUS
     Route: 058
     Dates: start: 20050117

REACTIONS (1)
  - WHITE BLOOD CELL COUNT INCREASED [None]
